FAERS Safety Report 6907637-6 (Version None)
Quarter: 2010Q3

REPORT INFORMATION
  Report Type: 
  Country: None (occurrence: None)
  Receive Date: 20100805
  Receipt Date: 20100727
  Transmission Date: 20110219
  Serious: Yes (Hospitalization)
  Sender: FDA-Public Use
  Company Number: US-JNJFOC-20100708584

PATIENT
  Sex: Female

DRUGS (1)
  1. REMICADE [Suspect]
     Indication: PRODUCT USED FOR UNKNOWN INDICATION
     Route: 042

REACTIONS (6)
  - COLECTOMY [None]
  - GALLBLADDER DISORDER [None]
  - OVARIAN DISORDER [None]
  - RESPIRATORY ARREST [None]
  - SURGERY [None]
  - URTICARIA [None]
